FAERS Safety Report 7119839-7 (Version None)
Quarter: 2010Q4

REPORT INFORMATION
  Report Type: 
  Country: None (occurrence: None)
  Receive Date: 20101123
  Receipt Date: 20100907
  Transmission Date: 20110411
  Serious: No
  Sender: FDA-Public Use
  Company Number: US-BRISTOL-MYERS SQUIBB COMPANY-15274368

PATIENT
  Age: 61 Year
  Sex: Male

DRUGS (4)
  1. ONGLYZA [Suspect]
  2. METFORMIN HCL [Concomitant]
  3. COZAAR [Concomitant]
  4. GLIPIZIDE [Concomitant]

REACTIONS (1)
  - BACK PAIN [None]
